FAERS Safety Report 12742595 (Version 4)
Quarter: 2017Q1

REPORT INFORMATION
  Report Type: Spontaneous
  Country: US (occurrence: US)
  Receive Date: 20160914
  Receipt Date: 20170124
  Transmission Date: 20170428
  Serious: Yes (Other)
  Sender: FDA-Public Use
  Company Number: US-ACTELION-A-US2016-142094

PATIENT
  Age: 88 Year
  Sex: Female

DRUGS (3)
  1. RIOCIGUAT [Concomitant]
     Active Substance: RIOCIGUAT
     Dosage: 1.5 MG, TID
  2. TRACLEER [Suspect]
     Active Substance: BOSENTAN
     Indication: PULMONARY ARTERIAL HYPERTENSION
     Dosage: 125 MG, BID
     Route: 048
     Dates: start: 20101209
  3. RIOCIGUAT [Concomitant]
     Active Substance: RIOCIGUAT
     Dosage: 2.5 MG, UNK

REACTIONS (11)
  - Neoplasm malignant [Unknown]
  - Nausea [Unknown]
  - Skin irritation [Unknown]
  - Asthenia [Unknown]
  - Fluid retention [Unknown]
  - Fatigue [Unknown]
  - Skin ulcer [Unknown]
  - Vomiting [Unknown]
  - Abdominal discomfort [Unknown]
  - Dyspnoea [Unknown]
  - Flatulence [Unknown]
